FAERS Safety Report 15250199 (Version 1)
Quarter: 2018Q3

REPORT INFORMATION
  Report Type: Spontaneous
  Country: US (occurrence: US)
  Receive Date: 20180716
  Receipt Date: 20180716
  Transmission Date: 20181010
  Serious: No
  Sender: FDA-Public Use
  Company Number: None

PATIENT
  Age: 57 Year
  Sex: Male

DRUGS (1)
  1. EPCLUSA [Suspect]
     Active Substance: SOFOSBUVIR\VELPATASVIR
     Dates: start: 20180612, end: 20180716

REACTIONS (3)
  - Drug dose omission [None]
  - Dizziness [None]
  - Memory impairment [None]

NARRATIVE: CASE EVENT DATE: 20180712
